FAERS Safety Report 8782167 (Version 1)
Quarter: 2012Q4

REPORT INFORMATION
  Report Type: 
  Country: US (occurrence: US)
  Receive Date: 20120913
  Receipt Date: 20120913
  Transmission Date: 20130627
  Serious: No
  Sender: FDA-Public Use
  Company Number: US-B.I. PHARMACEUTICALS,INC./RIDGEFIELD-2012-BP-22150BP

PATIENT
  Age: 60 Year
  Sex: Female
  Weight: 28 kg

DRUGS (6)
  1. SPIRIVA [Suspect]
     Indication: CHRONIC OBSTRUCTIVE PULMONARY DISEASE
     Dosage: 18 mcg
     Route: 055
     Dates: start: 2007
  2. SPIRIVA [Suspect]
     Route: 048
     Dates: start: 20120906, end: 20120906
  3. SYMBICORT [Concomitant]
     Indication: CHRONIC OBSTRUCTIVE PULMONARY DISEASE
     Dates: start: 201209
  4. SINGULAIR [Concomitant]
     Indication: SEASONAL ALLERGY
     Dosage: 10 mg
     Route: 048
     Dates: start: 2007
  5. NASONEX [Concomitant]
     Indication: NASAL DISCOMFORT
     Dosage: 100 mcg
     Route: 045
     Dates: start: 2007
  6. NEBULIZER [Concomitant]
     Indication: CHRONIC OBSTRUCTIVE PULMONARY DISEASE
     Dates: start: 2007

REACTIONS (1)
  - Incorrect route of drug administration [Recovered/Resolved]
